FAERS Safety Report 21568694 (Version 2)
Quarter: 2022Q4

REPORT INFORMATION
  Report Type: Report from Study
  Country: PL (occurrence: PL)
  Receive Date: 20221108
  Receipt Date: 20221228
  Transmission Date: 20230113
  Serious: Yes (Disabling, Other)
  Sender: FDA-Public Use
  Company Number: PL-CELGENE-POL-20210302354

PATIENT
  Age: 46 Year
  Sex: Female

DRUGS (3)
  1. Nebivolek (nebiwolol) [Concomitant]
     Indication: Hypertension
     Dosage: 5 MILLIGRAM
     Route: 048
     Dates: start: 20200510
  2. VIBIN MINI [Concomitant]
     Indication: Contraception
     Dosage: DOSAGE= 1TABLET
     Route: 048
     Dates: start: 20200301
  3. CONDOME WITH SPERMICYDE [Concomitant]
     Indication: Contraception
     Dosage: FREQUENCY TEXT: AS NEEDED?UNIT DOSE= 1 (OTHER), FRE: AS NEEDED
     Route: 050

REACTIONS (1)
  - Progressive multifocal leukoencephalopathy [Recovered/Resolved with Sequelae]

NARRATIVE: CASE EVENT DATE: 20210129
